FAERS Safety Report 20343868 (Version 1)
Quarter: 2022Q1

REPORT INFORMATION
  Report Type: Spontaneous
  Country: CN (occurrence: None)
  Receive Date: 20220118
  Receipt Date: 20220118
  Transmission Date: 20220423
  Serious: Yes (Hospitalization)
  Sender: FDA-Public Use
  Company Number: CN-ROCHE-2997954

PATIENT
  Age: 47 Year
  Sex: Female
  Weight: 61 kg

DRUGS (5)
  1. PERTUZUMAB [Suspect]
     Active Substance: PERTUZUMAB
     Indication: Breast cancer
     Route: 041
     Dates: start: 20211103, end: 20211103
  2. PACLITAXEL [Suspect]
     Active Substance: PACLITAXEL
     Indication: Breast cancer
     Route: 041
     Dates: start: 20211103, end: 20211103
  3. SODIUM CHLORIDE [Concomitant]
     Active Substance: SODIUM CHLORIDE
     Dosage: LOT NO. 210910-02
     Route: 041
     Dates: start: 20211103, end: 20211103
  4. SODIUM CHLORIDE [Concomitant]
     Active Substance: SODIUM CHLORIDE
     Dosage: LOT NO. 210808-01
     Route: 041
     Dates: start: 20211103, end: 20211103
  5. DEXTROSE [Concomitant]
     Active Substance: DEXTROSE
     Indication: Breast cancer
     Route: 041
     Dates: start: 20211103, end: 20211103

REACTIONS (1)
  - Hepatic function abnormal [Recovering/Resolving]

NARRATIVE: CASE EVENT DATE: 20211123
